FAERS Safety Report 8762472 (Version 2)
Quarter: 2013Q1

REPORT INFORMATION
  Report Type: Report from Study
  Country: US (occurrence: US)
  Receive Date: 20120830
  Receipt Date: 20130304
  Transmission Date: 20140127
  Serious: Yes (Hospitalization, Other)
  Sender: FDA-Public Use
  Company Number: US-ABBOTT-12P-163-0972780-00

PATIENT
  Age: 71 None
  Sex: Female
  Weight: 74.91 kg

DRUGS (26)
  1. HUMIRA 40 MG/ 0.8 ML PRE-FILLED SYRINGE [Suspect]
     Indication: RHEUMATOID ARTHRITIS
     Dates: start: 2006, end: 20121211
  2. HUMIRA 40 MG/ 0.8 ML PRE-FILLED SYRINGE [Suspect]
     Dates: start: 20130217
  3. MELOXICAM [Concomitant]
     Indication: RHEUMATOID ARTHRITIS
  4. LEUFLUNOMIDE [Concomitant]
     Indication: RHEUMATOID ARTHRITIS
  5. TIZANIDINE [Concomitant]
     Indication: BACK PAIN
  6. GABAPENTIN [Concomitant]
     Indication: NEUROPATHY PERIPHERAL
     Route: 048
  7. TRAMADOL [Concomitant]
     Indication: PRODUCT USED FOR UNKNOWN INDICATION
     Dosage: 37.5/325, 6/DAY
  8. HYDROCODONE [Concomitant]
     Indication: PRODUCT USED FOR UNKNOWN INDICATION
  9. LOSARTIN [Concomitant]
     Indication: HYPERTENSION
  10. LEVOTHYROXINE [Concomitant]
     Indication: HYPOTHYROIDISM
  11. SIMVASTATIN [Concomitant]
     Indication: BLOOD CHOLESTEROL INCREASED
  12. FUROSEMIDE [Concomitant]
     Indication: FLUID RETENTION
  13. ADVIR [Concomitant]
     Indication: ASTHMA
     Dosage: 250/50  BID
  14. SINGULAIR [Concomitant]
     Indication: ASTHMA
  15. VENTOLIN [Concomitant]
     Indication: ASTHMA
  16. TRIAMCINOLONE [Concomitant]
     Indication: PRODUCT USED FOR UNKNOWN INDICATION
     Dosage: 2 SPRAY EACH NARES DAILY
  17. CIPRODES OTIC [Concomitant]
     Indication: PRODUCT USED FOR UNKNOWN INDICATION
  18. CALCIUM WITH D [Concomitant]
     Indication: PRODUCT USED FOR UNKNOWN INDICATION
  19. VIT D [Concomitant]
     Indication: PRODUCT USED FOR UNKNOWN INDICATION
  20. EYE VITAMINS [Concomitant]
     Indication: PRODUCT USED FOR UNKNOWN INDICATION
  21. MUCINEX [Concomitant]
     Indication: SINUS DISORDER
  22. SALINE NASAL SPRAY [Concomitant]
     Indication: PRODUCT USED FOR UNKNOWN INDICATION
     Route: 050
  23. ARAVA [Concomitant]
     Indication: PRODUCT USED FOR UNKNOWN INDICATION
  24. CIRPODEX SUSPENSION [Concomitant]
     Indication: PRODUCT USED FOR UNKNOWN INDICATION
  25. TORSEMIDE [Concomitant]
     Indication: PRODUCT USED FOR UNKNOWN INDICATION
  26. VENTALIN [Concomitant]
     Indication: PRODUCT USED FOR UNKNOWN INDICATION

REACTIONS (7)
  - Tendon rupture [Unknown]
  - Chondroplasty [Not Recovered/Not Resolved]
  - Fall [Recovered/Resolved]
  - Upper respiratory tract infection [Recovered/Resolved]
  - Pneumonia [Recovered/Resolved]
  - Fall [Recovered/Resolved]
  - Tendon injury [Unknown]
